FAERS Safety Report 24112774 (Version 2)
Quarter: 2024Q3

REPORT INFORMATION
  Report Type: Spontaneous
  Country: JP (occurrence: JP)
  Receive Date: 20240719
  Receipt Date: 20240813
  Transmission Date: 20241016
  Serious: Yes (Death, Other)
  Sender: OTSUKA
  Company Number: JP-OTSUKA-2024_020106

PATIENT
  Age: 41 Year
  Sex: Female

DRUGS (1)
  1. ABILIFY [Suspect]
     Active Substance: ARIPIPRAZOLE
     Indication: Product used for unknown indication
     Dosage: UNK
     Route: 065
     Dates: start: 200907, end: 200909

REACTIONS (2)
  - Pulmonary alveolar haemorrhage [Fatal]
  - Autoimmune nephritis [Fatal]
